FAERS Safety Report 10580534 (Version 1)
Quarter: 2014Q4

REPORT INFORMATION
  Report Type: Spontaneous
  Country: FR (occurrence: FR)
  Receive Date: 20141113
  Receipt Date: 20141113
  Transmission Date: 20150529
  Serious: Yes (Other)
  Sender: FDA-Public Use
  Company Number: FR-PFIZER INC-2014309859

PATIENT
  Age: 80 Year
  Sex: Male

DRUGS (21)
  1. AMLOR [Suspect]
     Active Substance: AMLODIPINE BESYLATE
     Dosage: 5 MG, 1X/DAY
     Route: 048
     Dates: start: 20140921, end: 20140925
  2. TAHOR [Concomitant]
     Active Substance: ATORVASTATIN CALCIUM
     Dosage: 80 MG, 1X/DAY
     Route: 048
     Dates: start: 20140912
  3. HUMALOG [Concomitant]
     Active Substance: INSULIN LISPRO
     Dosage: 2 IU, 3X/DAY
     Route: 058
     Dates: start: 20140912
  4. XATRAL [Concomitant]
     Active Substance: ALFUZOSIN
     Dosage: 10 MG, 1X/DAY
     Route: 048
     Dates: start: 20140911
  5. VANCOMYCINE SANDOZ [Suspect]
     Active Substance: VANCOMYCIN
     Dosage: 2 G, DAILY
     Route: 041
     Dates: start: 20140917, end: 20140922
  6. AUGMENTIN [Suspect]
     Active Substance: AMOXICILLIN\CLAVULANATE POTASSIUM
     Dosage: 1 G, 3X/DAY
     Route: 043
     Dates: start: 20140911, end: 20140917
  7. HEPARINE SODIUM PANPHARMA [Suspect]
     Active Substance: HEPARIN SODIUM
     Dosage: 7000 IU, 3X/DAY
     Route: 041
     Dates: start: 20140911, end: 201410
  8. AZANTAC [Suspect]
     Active Substance: RANITIDINE HYDROCHLORIDE
     Dosage: 1 DF, 2X/DAY
     Route: 041
     Dates: start: 20140912, end: 20141010
  9. INEXIUM /01479302/ [Concomitant]
     Active Substance: ESOMEPRAZOLE MAGNESIUM
     Dosage: 20 MG, 1X/DAY
     Route: 048
     Dates: start: 20140911
  10. TRIATEC [Concomitant]
     Active Substance: RAMIPRIL
     Dosage: 1.25 MG, 2X/DAY
     Route: 048
     Dates: start: 20140918
  11. BACTRIM [Concomitant]
     Active Substance: SULFAMETHOXAZOLE\TRIMETHOPRIM
     Dosage: 1 DF, 2X/DAY
     Route: 048
     Dates: start: 20140924
  12. PLAVIX [Concomitant]
     Active Substance: CLOPIDOGREL BISULFATE
     Dosage: 75 MG, 1X/DAY
     Route: 048
  13. TAVANIC [Suspect]
     Active Substance: LEVOFLOXACIN
     Dosage: 500 MG, 2X/DAY
     Route: 048
     Dates: start: 20140924, end: 20141010
  14. TAZOCILLINE [Suspect]
     Active Substance: PIPERACILLIN SODIUM\TAZOBACTAM SODIUM
     Dosage: 1 DF, 3X/DAY
     Route: 041
     Dates: start: 20140917, end: 20140922
  15. TIENAM [Suspect]
     Active Substance: CILASTATIN SODIUM\IMIPENEM
     Dosage: 1 G, 4X/DAY
     Route: 041
     Dates: start: 20140922, end: 20140924
  16. LANTUS [Suspect]
     Active Substance: INSULIN GLARGINE
     Dosage: 14 IU, 1X/DAY
     Route: 058
     Dates: start: 20140921, end: 20141001
  17. INVANZ [Concomitant]
     Active Substance: ERTAPENEM SODIUM
     Dosage: 1 G, 2X/DAY
     Route: 048
     Dates: start: 20140924
  18. TIAPRIDAL [Suspect]
     Active Substance: TIAPRIDE HYDROCHLORIDE
     Dosage: 50 ?G, 1X/DAY
     Route: 041
     Dates: start: 20140912, end: 20140917
  19. AMIKLIN [Suspect]
     Active Substance: AMIKACIN SULFATE
     Dosage: 1850 MG, 1X/DAY
     Route: 041
     Dates: start: 20140922, end: 20140925
  20. PREVISCAN [Suspect]
     Active Substance: FLUINDIONE
     Dosage: 10 MG, 1X/DAY
     Route: 048
     Dates: start: 20140925, end: 20140928
  21. KARDEGIC [Concomitant]
     Active Substance: ASPIRIN LYSINE
     Dosage: 75 MG, 1X/DAY
     Route: 048
     Dates: start: 20140912

REACTIONS (1)
  - Cutaneous vasculitis [Recovered/Resolved]

NARRATIVE: CASE EVENT DATE: 20141001
